FAERS Safety Report 15844227 (Version 1)
Quarter: 2019Q1

REPORT INFORMATION
  Report Type: Spontaneous
  Country: IT (occurrence: DK)
  Receive Date: 20190118
  Receipt Date: 20190118
  Transmission Date: 20190417
  Serious: Yes (Hospitalization)
  Sender: FDA-Public Use
  Company Number: IT-SUNOVION-2019SUN000198

PATIENT

DRUGS (14)
  1. LATUDA [Suspect]
     Active Substance: LURASIDONE HYDROCHLORIDE
     Dosage: 37 MG, QD
     Route: 048
     Dates: start: 20181119
  2. OXAZEPAM. [Concomitant]
     Active Substance: OXAZEPAM
     Indication: SEDATIVE THERAPY
     Dosage: 15 MG, AS NECESSARY
     Dates: start: 20170314
  3. OLOPATADINE. [Concomitant]
     Active Substance: OLOPATADINE
     Indication: EYE INFECTION
     Dosage: 1 DF, QD
     Dates: start: 20180406
  4. SERTRALINE [Concomitant]
     Active Substance: SERTRALINE HYDROCHLORIDE
     Indication: DEPRESSION
     Dosage: 50 MG, TID
     Dates: start: 20170324
  5. IBUPROFEN. [Concomitant]
     Active Substance: IBUPROFEN
     Indication: PAIN
     Dosage: 400 MG, HALF TABLET,  AS NECESSARY
     Dates: start: 20170831
  6. BUDESONIDE. [Concomitant]
     Active Substance: BUDESONIDE
     Indication: ASTHMA
     Dosage: 200 ?G, BID
     Dates: start: 20180515
  7. PARACETAMOL [Concomitant]
     Active Substance: ACETAMINOPHEN
     Indication: PAIN
     Dosage: 500 MG, AS NECESSARY
     Dates: start: 20170131
  8. MELATONIN [Concomitant]
     Active Substance: MELATONIN
     Indication: INSOMNIA
     Dosage: 2 MG, QD
     Dates: start: 20170324
  9. LEVONORGESTREL + ETINILESTRADIOL [Concomitant]
     Active Substance: ETHINYL ESTRADIOL\LEVONORGESTREL
     Indication: CONTRACEPTION
     Dosage: 1 DF, QD
     Dates: start: 20161026
  10. AZELASTINE W/FLUTICASONE [Concomitant]
     Indication: RHINITIS ALLERGIC
     Dosage: 1 DF, QD
     Dates: start: 20180406
  11. LATUDA [Suspect]
     Active Substance: LURASIDONE HYDROCHLORIDE
     Indication: SCHIZOPHRENIA
     Dosage: 111 MG, QD
     Route: 048
     Dates: start: 20180917, end: 20181118
  12. BIPERIDEN [Concomitant]
     Active Substance: BIPERIDEN
     Indication: ADVERSE DRUG REACTION
     Dosage: 2 MG, AS NECESSARY
     Dates: start: 20180924
  13. BUVENTOL [Concomitant]
     Indication: ASTHMA
     Dosage: 200 ?G, QID
     Dates: start: 20180515
  14. FORMOTEROL [Concomitant]
     Active Substance: FORMOTEROL
     Indication: ASTHMA
     Dosage: 12 ?G, BID
     Dates: start: 20180402

REACTIONS (2)
  - Dyskinesia [Recovered/Resolved]
  - Nystagmus [Recovering/Resolving]
